FAERS Safety Report 23507717 (Version 3)
Quarter: 2024Q1

REPORT INFORMATION
  Report Type: Spontaneous
  Country: CA (occurrence: CA)
  Receive Date: 20240209
  Receipt Date: 20240223
  Transmission Date: 20240410
  Serious: Yes (Other)
  Sender: FDA-Public Use
  Company Number: CA-PFIZER INC-202300370052

PATIENT
  Age: 56 Year
  Sex: Female

DRUGS (2)
  1. CIBINQO [Suspect]
     Active Substance: ABROCITINIB
     Indication: Dermatitis atopic
     Dosage: 100 MG, 1X/DAY
     Route: 048
     Dates: start: 20231107, end: 20240104
  2. CIBINQO [Suspect]
     Active Substance: ABROCITINIB
     Dosage: 200 MG, 1X/DAY
     Route: 048
     Dates: start: 20240105

REACTIONS (15)
  - Immunosuppression [Unknown]
  - Drug ineffective [Unknown]
  - Nausea [Recovering/Resolving]
  - Diarrhoea [Recovering/Resolving]
  - Vomiting [Recovering/Resolving]
  - Eye disorder [Unknown]
  - Eyelid oedema [Unknown]
  - Chromaturia [Unknown]
  - Urine odour abnormal [Unknown]
  - Dyspepsia [Unknown]
  - Pyrexia [Unknown]
  - Eye swelling [Unknown]
  - Conjunctivitis [Unknown]
  - Blepharitis [Unknown]
  - Epistaxis [Unknown]

NARRATIVE: CASE EVENT DATE: 20230101
